FAERS Safety Report 18854812 (Version 1)
Quarter: 2021Q1

REPORT INFORMATION
  Report Type: Spontaneous
  Country: US (occurrence: US)
  Receive Date: 20210205
  Receipt Date: 20210205
  Transmission Date: 20210420
  Serious: No
  Sender: FDA-Public Use
  Company Number: US-JNJFOC-20200950996

PATIENT
  Age: 66 Year
  Sex: Male
  Weight: 66.7 kg

DRUGS (1)
  1. VELETRI [Suspect]
     Active Substance: EPOPROSTENOL
     Indication: PULMONARY ARTERIAL HYPERTENSION
     Route: 041
     Dates: start: 20160316

REACTIONS (1)
  - Product physical consistency issue [Recovered/Resolved]

NARRATIVE: CASE EVENT DATE: 20200914
